FAERS Safety Report 18645700 (Version 1)
Quarter: 2020Q4

REPORT INFORMATION
  Report Type: Spontaneous
  Country: US (occurrence: US)
  Receive Date: 20201222
  Receipt Date: 20201222
  Transmission Date: 20210114
  Serious: Yes (Death, Other)
  Sender: FDA-Public Use
  Company Number: US-SA-2020SA361727

PATIENT

DRUGS (1)
  1. DIPHENHYDRAMINE. [Suspect]
     Active Substance: DIPHENHYDRAMINE
     Indication: SUICIDE ATTEMPT

REACTIONS (5)
  - Overdose [Fatal]
  - Visceral congestion [Fatal]
  - Cardiomegaly [Fatal]
  - Pulmonary oedema [Fatal]
  - Toxicity to various agents [Fatal]
